FAERS Safety Report 9751833 (Version 5)
Quarter: 2014Q2

REPORT INFORMATION
  Report Type: Report from Study
  Country: JP (occurrence: JP)
  Receive Date: 20131213
  Receipt Date: 20140620
  Transmission Date: 20141212
  Serious: Yes (Hospitalization, Disabling)
  Sender: FDA-Public Use
  Company Number: JP-AMGEN-JPNCT2013087466

PATIENT
  Age: 42 Year
  Sex: Female
  Weight: 41 kg

DRUGS (17)
  1. DENOSUMAB [Suspect]
     Indication: METASTASES TO BONE
     Dosage: 120 MG, UNK
     Route: 058
     Dates: start: 20121016, end: 20130814
  2. ZOMETA [Concomitant]
     Indication: PROPHYLAXIS
     Dosage: 3-4 WEEK INTERVALS EVERY
     Route: 042
     Dates: start: 2005, end: 20120810
  3. CALCICOL [Concomitant]
     Dosage: 5 G, UNK
     Route: 048
     Dates: start: 20121016
  4. ONEALFA [Concomitant]
     Dosage: 1 MUG, UNK
     Route: 048
     Dates: start: 20121019
  5. PACLITAXEL [Concomitant]
     Dosage: UNK
     Route: 065
     Dates: start: 20101115, end: 20130814
  6. PACLITAXEL [Concomitant]
     Dosage: UNKNOWN
     Route: 065
     Dates: start: 20101115, end: 20130814
  7. AVASTIN                            /01555201/ [Concomitant]
     Dosage: UNKNOWN
     Route: 065
     Dates: start: 20120213, end: 20130814
  8. DECADRON                           /00016001/ [Concomitant]
     Dosage: UNK
     Route: 065
     Dates: start: 2010
  9. GASTER D [Concomitant]
     Dosage: 40 MG, UNK
     Route: 048
     Dates: start: 20120928
  10. MAGMITT [Concomitant]
     Dosage: 990 MG, UNK
     Route: 048
  11. PURSENNIDE                         /00571901/ [Concomitant]
     Dosage: UNK
     Route: 048
  12. OXYCONTIN [Concomitant]
     Dosage: 60 MG, UNK
     Route: 048
     Dates: start: 20100512
  13. EMEND                              /01627301/ [Concomitant]
     Dosage: 80 MG, UNK
     Route: 048
  14. ZANTAC [Concomitant]
     Dosage: UNK
     Route: 048
     Dates: start: 20120404, end: 20120811
  15. ZANTAC [Concomitant]
     Dosage: 300MG,UNK
     Route: 048
     Dates: start: 20120404, end: 20120811
  16. NOLVADEX                           /00388701/ [Concomitant]
     Dosage: 20 MG, UNK
     Route: 048
     Dates: start: 1998
  17. SENNOSIDE A+B [Concomitant]
     Dosage: 24 MG, UNK
     Route: 048

REACTIONS (1)
  - Atypical femur fracture [Recovered/Resolved with Sequelae]
